FAERS Safety Report 6792563-6 (Version None)
Quarter: 2010Q2

REPORT INFORMATION
  Report Type: 
  Country: None (occurrence: None)
  Receive Date: 20100624
  Receipt Date: 20080811
  Transmission Date: 20101027
  Serious: No
  Sender: FDA-Public Use
  Company Number: US-PFIZER INC-2008065652

PATIENT
  Age: 83 Year
  Sex: Female

DRUGS (4)
  1. NIFEDIPINE [Suspect]
     Indication: HYPERTENSION
     Route: 048
  2. WARFARIN [Concomitant]
  3. HYZAAR [Concomitant]
  4. LANOXIN [Concomitant]

REACTIONS (3)
  - BLOOD PRESSURE FLUCTUATION [None]
  - BLOOD PRESSURE SYSTOLIC INCREASED [None]
  - DRUG INEFFECTIVE [None]
